FAERS Safety Report 11421290 (Version 3)
Quarter: 2015Q3

REPORT INFORMATION
  Report Type: Spontaneous
  Country: US (occurrence: US)
  Receive Date: 20150826
  Receipt Date: 20150910
  Transmission Date: 20151125
  Serious: Yes (Other)
  Sender: FDA-Public Use
  Company Number: US-BAXTER-2015BAX045990

PATIENT
  Age: 40 Year
  Sex: Female

DRUGS (1)
  1. TISSEEL VH [Suspect]
     Active Substance: FIBRINOGEN HUMAN\THROMBIN HUMAN
     Indication: HAEMOSTASIS
     Route: 061

REACTIONS (3)
  - Sensory loss [Not Recovered/Not Resolved]
  - Vein disorder [Recovered/Resolved]
  - Trigeminal nerve disorder [Not Recovered/Not Resolved]
